FAERS Safety Report 8334310-2 (Version None)
Quarter: 2012Q2

REPORT INFORMATION
  Report Type: 
  Country: None (occurrence: None)
  Receive Date: 20120503
  Receipt Date: 20120426
  Transmission Date: 20120825
  Serious: Yes (Hospitalization)
  Sender: FDA-Public Use
  Company Number: JP-B.I. PHARMACEUTICALS,INC./RIDGEFIELD-2012-BP-09557NB

PATIENT
  Age: 73 Year
  Sex: Male
  Weight: 70.6 kg

DRUGS (7)
  1. PRAVASTATIN SODIUM [Concomitant]
     Dosage: 10 MG
     Route: 065
  2. ALLOPURINOL [Concomitant]
     Dosage: 100 MG
     Route: 065
  3. LANSOPRAZOLE [Concomitant]
     Dosage: 1 ANZ
     Route: 065
  4. AMLODIPINE [Concomitant]
     Dosage: 10 MG
     Route: 065
  5. PRADAXA [Suspect]
     Indication: ATRIAL FIBRILLATION
     Dosage: 220 MG
     Route: 048
     Dates: start: 20120329, end: 20120425
  6. FLUTORIA [Concomitant]
     Dosage: 0.5 MG
     Route: 065
  7. DIOVAN [Concomitant]
     Dosage: 80 MG
     Route: 065

REACTIONS (6)
  - ALANINE AMINOTRANSFERASE INCREASED [None]
  - BLOOD LACTATE DEHYDROGENASE INCREASED [None]
  - GAMMA-GLUTAMYLTRANSFERASE INCREASED [None]
  - BLOOD BILIRUBIN INCREASED [None]
  - ASPARTATE AMINOTRANSFERASE INCREASED [None]
  - HEPATIC FUNCTION ABNORMAL [None]
